FAERS Safety Report 18444148 (Version 1)
Quarter: 2020Q4

REPORT INFORMATION
  Report Type: Spontaneous
  Country: US (occurrence: US)
  Receive Date: 20201030
  Receipt Date: 20201030
  Transmission Date: 20210114
  Serious: No
  Sender: FDA-Public Use
  Company Number: US-FOAMIX PHARMACEUTICALS LTD.-2020US004975

PATIENT

DRUGS (2)
  1. AMZEEQ [Suspect]
     Active Substance: MINOCYCLINE HYDROCHLORIDE
     Indication: ACNE
     Dosage: UNK, DAILY FOR 8 WEEKS
     Route: 061
  2. SPIRONOLACTONE. [Suspect]
     Active Substance: SPIRONOLACTONE
     Indication: ACNE
     Dosage: 100 MG, DAILY
     Route: 065

REACTIONS (3)
  - Ocular icterus [Unknown]
  - Pruritus [Unknown]
  - Hepatic enzyme abnormal [Unknown]
